FAERS Safety Report 8970205 (Version 1)
Quarter: 2012Q4

REPORT INFORMATION
  Report Type: 
  Country: US (occurrence: US)
  Receive Date: 20121218
  Receipt Date: 20121218
  Transmission Date: 20130627
  Serious: No
  Sender: FDA-Public Use
  Company Number: US-GLAXOSMITHKLINE-A0953860A

PATIENT
  Age: 62 Year
  Sex: Male

DRUGS (2)
  1. COMMIT [Suspect]
     Indication: EX-TOBACCO USER
     Dates: start: 20111013
  2. COMMIT [Suspect]
     Indication: EX-TOBACCO USER
     Dates: start: 20111013

REACTIONS (3)
  - Blood potassium increased [Unknown]
  - Expired drug administered [Unknown]
  - Drug administration error [Unknown]
